FAERS Safety Report 5263702-3 (Version None)
Quarter: 2007Q1

REPORT INFORMATION
  Report Type: 
  Country: None (occurrence: None)
  Receive Date: 20070313
  Receipt Date: 20070308
  Transmission Date: 20070707
  Serious: Yes (Life-Threatening, Hospitalization, Disabling)
  Sender: FDA-Public Use
  Company Number: JP-BRISTOL-MYERS SQUIBB COMPANY-13700190

PATIENT
  Age: 77 Year
  Sex: Female

DRUGS (7)
  1. TAXOL [Suspect]
     Indication: LUNG ADENOCARCINOMA
     Route: 041
     Dates: start: 20061226, end: 20061226
  2. PARAPLATIN [Suspect]
     Indication: LUNG ADENOCARCINOMA
     Route: 041
     Dates: start: 20061226, end: 20061226
  3. DECADRON [Suspect]
     Indication: PREMEDICATION
     Route: 041
     Dates: start: 20061226, end: 20061226
  4. ZOFRAN ZYDIS [Concomitant]
     Route: 048
     Dates: start: 20061227, end: 20061231
  5. PRIMPERAN INJ [Concomitant]
     Route: 048
     Dates: start: 20061228, end: 20061230
  6. ZANTAC [Concomitant]
     Route: 041
     Dates: start: 20061226, end: 20061226
  7. NASEA [Concomitant]
     Route: 041
     Dates: start: 20061226, end: 20061226

REACTIONS (4)
  - ATRIAL FIBRILLATION [None]
  - CARDIAC FAILURE CONGESTIVE [None]
  - DISSEMINATED INTRAVASCULAR COAGULATION [None]
  - PULMONARY EMBOLISM [None]
